FAERS Safety Report 18992218 (Version 1)
Quarter: 2021Q1

REPORT INFORMATION
  Report Type: Spontaneous
  Country: US (occurrence: US)
  Receive Date: 20210310
  Receipt Date: 20210310
  Transmission Date: 20210420
  Serious: No
  Sender: FDA-Public Use
  Company Number: None

PATIENT
  Age: 78 Year
  Sex: Female
  Weight: 47.6 kg

DRUGS (14)
  1. IBRANCE [Suspect]
     Active Substance: PALBOCICLIB
     Indication: BREAST CANCER
     Route: 048
     Dates: start: 20210216
  2. IBRANCE [Concomitant]
     Active Substance: PALBOCICLIB
  3. METOPROLOL TARTRATE. [Concomitant]
     Active Substance: METOPROLOL TARTRATE
  4. ATORVASTATIN CALCIUM. [Concomitant]
     Active Substance: ATORVASTATIN CALCIUM
  5. CHLORTHALIDONE. [Concomitant]
     Active Substance: CHLORTHALIDONE
  6. COVID?19 VACCINE NOS. [Suspect]
     Active Substance: COVID-19 VACCINE NOS
  7. DAILY VITE [Concomitant]
     Active Substance: VITAMINS
  8. TYLENOL [Concomitant]
     Active Substance: ACETAMINOPHEN
  9. AMLODIPINE BESYLATE. [Concomitant]
     Active Substance: AMLODIPINE BESYLATE
  10. ASPIRIN. [Concomitant]
     Active Substance: ASPIRIN
  11. FASLODEX [Concomitant]
     Active Substance: FULVESTRANT
  12. KETOROLAC TROMETHAMINE. [Concomitant]
     Active Substance: KETOROLAC TROMETHAMINE
  13. POLYTRIM [Concomitant]
     Active Substance: POLYMYXIN B SULFATE\TRIMETHOPRIM SULFATE
  14. PREDNISOLONE ACETATE. [Concomitant]
     Active Substance: PREDNISOLONE ACETATE

REACTIONS (2)
  - Diarrhoea [None]
  - Asthenia [None]

NARRATIVE: CASE EVENT DATE: 20210302
